FAERS Safety Report 20131088 (Version 1)
Quarter: 2021Q4

REPORT INFORMATION
  Report Type: Spontaneous
  Country: US (occurrence: US)
  Receive Date: 20211130
  Receipt Date: 20211130
  Transmission Date: 20220303
  Serious: Yes (Other)
  Sender: FDA-Public Use
  Company Number: US-GLAXOSMITHKLINE-US2021241235

PATIENT
  Age: 70 Year
  Sex: Male

DRUGS (16)
  1. TRELEGY ELLIPTA [Suspect]
     Active Substance: FLUTICASONE FUROATE\UMECLIDINIUM BROMIDE\VILANTEROL TRIFENATATE
     Indication: Chronic obstructive pulmonary disease
     Dosage: 200MCG/62.5MCG/25MCG DAILY
  2. TRELEGY ELLIPTA [Suspect]
     Active Substance: FLUTICASONE FUROATE\UMECLIDINIUM BROMIDE\VILANTEROL TRIFENATATE
     Indication: Asthma
  3. TRELEGY ELLIPTA [Suspect]
     Active Substance: FLUTICASONE FUROATE\UMECLIDINIUM BROMIDE\VILANTEROL TRIFENATATE
     Indication: Bronchitis chronic
  4. TRELEGY ELLIPTA [Suspect]
     Active Substance: FLUTICASONE FUROATE\UMECLIDINIUM BROMIDE\VILANTEROL TRIFENATATE
     Indication: Emphysema
  5. ACETAMINOPHEN [Suspect]
     Active Substance: ACETAMINOPHEN
     Indication: Product used for unknown indication
     Dosage: UNK
  6. AMLODIPINE [Concomitant]
     Active Substance: AMLODIPINE BESYLATE
     Indication: Hypertension
     Dosage: 10 MG DAILY
     Dates: start: 202109
  7. TOPAMAX [Concomitant]
     Active Substance: TOPIRAMATE
     Indication: Headache
     Dosage: UNK
  8. BUSPIRONE [Concomitant]
     Active Substance: BUSPIRONE HYDROCHLORIDE
     Indication: Anxiety
     Dosage: 30 MG, QD
  9. FOSAMAX [Concomitant]
     Active Substance: ALENDRONATE SODIUM
     Indication: Osteopenia
     Dosage: ONCE PER WEEK
  10. XANAX [Concomitant]
     Active Substance: ALPRAZOLAM
     Indication: Anxiety
     Dosage: 0.5MG DAILY (RX SAYS 1MG, BUT  PT ONLY TAKES 0.5MG)
     Dates: start: 202108
  11. METOPROLOL [Concomitant]
     Active Substance: METOPROLOL
     Indication: Hypertension
     Dosage: 50 MG, DAILY
  12. MIRTAZAPINE [Concomitant]
     Active Substance: MIRTAZAPINE
     Indication: Anxiety
     Dosage: UNK
     Dates: start: 2014
  13. REQUIP [Concomitant]
     Active Substance: ROPINIROLE HYDROCHLORIDE
     Indication: Restless legs syndrome
     Dosage: UNK
     Dates: start: 2018
  14. HYDRALAZINE [Concomitant]
     Active Substance: HYDRALAZINE HYDROCHLORIDE
     Indication: Hypertension
     Dosage: 10 MG, DAILY
     Dates: start: 202108
  15. HYDROCODONE [Concomitant]
     Active Substance: HYDROCODONE
     Indication: Pain
     Dosage: AS NEEDED
  16. PREDNISONE [Concomitant]
     Active Substance: PREDNISONE
     Indication: Pulmonary congestion
     Dosage: TWICE PER YEAR (AS NEEDED)
     Dates: start: 2014

REACTIONS (8)
  - Hepatitis [Unknown]
  - Hepatic cancer [Not Recovered/Not Resolved]
  - Fatigue [Unknown]
  - Pyrexia [Unknown]
  - Nausea [Unknown]
  - Vomiting [Unknown]
  - Pain [Unknown]
  - Lung disorder [Unknown]

NARRATIVE: CASE EVENT DATE: 20210201
